FAERS Safety Report 9149812 (Version 2)
Quarter: 2013Q4

REPORT INFORMATION
  Report Type: Spontaneous
  Country: US (occurrence: US)
  Receive Date: 20130308
  Receipt Date: 20131223
  Transmission Date: 20140711
  Serious: No
  Sender: FDA-Public Use
  Company Number: US-ENDO PHARMACEUTICALS INC.-OPCR20120665

PATIENT
  Sex: Female
  Weight: 118.95 kg

DRUGS (3)
  1. OPANA ER 30MG [Suspect]
     Indication: PAIN
     Route: 048
  2. OPANA ER 30MG [Suspect]
     Route: 048
     Dates: start: 2012
  3. OPANA ER 30MG [Concomitant]
     Indication: PAIN
     Route: 048
     Dates: start: 20111102, end: 2012

REACTIONS (1)
  - No adverse event [Not Recovered/Not Resolved]
